FAERS Safety Report 22064307 (Version 1)
Quarter: 2023Q1

REPORT INFORMATION
  Report Type: Spontaneous
  Country: CN (occurrence: CN)
  Receive Date: 20230306
  Receipt Date: 20230306
  Transmission Date: 20230418
  Serious: Yes (Hospitalization, Other)
  Sender: FDA-Public Use
  Company Number: CN-PFIZER INC-PV202300040186

PATIENT
  Age: 3 Week
  Sex: Male
  Weight: 1.36 kg

DRUGS (1)
  1. AZITHROMYCIN [Suspect]
     Active Substance: AZITHROMYCIN
     Indication: Ureaplasma infection
     Dosage: 7 MG, 1X/DAY
     Route: 048
     Dates: start: 20230206, end: 20230216

REACTIONS (5)
  - Bradycardia neonatal [Recovering/Resolving]
  - Sinus arrest [Recovering/Resolving]
  - Arrhythmia neonatal [Unknown]
  - Neonatal sinus tachycardia [Unknown]
  - Off label use [Unknown]

NARRATIVE: CASE EVENT DATE: 20230206
